FAERS Safety Report 6191782-X (Version None)
Quarter: 2009Q2

REPORT INFORMATION
  Report Type: 
  Country: None (occurrence: None)
  Receive Date: 20090515
  Receipt Date: 20090513
  Transmission Date: 20091009
  Serious: Yes (Other)
  Sender: FDA-Public Use
  Company Number: US-ROXANE LABORATORIES, INC.-2009-RO-00498RO

PATIENT
  Age: 57 Year
  Sex: Female

DRUGS (7)
  1. METHOTREXATE [Suspect]
     Indication: RHEUMATOID ARTHRITIS
  2. PREDNISOLONE [Suspect]
     Indication: RHEUMATOID ARTHRITIS
     Dosage: 2.5MG
  3. FOLIC ACID [Suspect]
     Indication: RHEUMATOID ARTHRITIS
  4. STEROIDS [Concomitant]
     Indication: MUCOSAL ULCERATION
     Route: 061
  5. STEROIDS [Concomitant]
  6. ANTIFUNGAL [Concomitant]
     Indication: MUCOSAL ULCERATION
     Route: 051
  7. ANTIFUNGAL [Concomitant]
     Route: 061

REACTIONS (1)
  - MUCOSAL ULCERATION [None]
